FAERS Safety Report 6081555-0 (Version None)
Quarter: 2009Q1

REPORT INFORMATION
  Report Type: 
  Country: None (occurrence: None)
  Receive Date: 20090218
  Receipt Date: 20090211
  Transmission Date: 20090719
  Serious: Yes (Other)
  Sender: FDA-Public Use
  Company Number: US-ASTRAZENECA-2009UW03886

PATIENT

DRUGS (2)
  1. SEROQUEL [Suspect]
     Dosage: 450 MG
     Route: 048
  2. SEROQUEL [Suspect]
     Dosage: 300 MG
     Route: 048

REACTIONS (2)
  - APNOEIC ATTACK [None]
  - SUICIDE ATTEMPT [None]
